FAERS Safety Report 12354033 (Version 1)
Quarter: 2016Q2

REPORT INFORMATION
  Report Type: Spontaneous
  Country: DE (occurrence: DE)
  Receive Date: 20160511
  Receipt Date: 20160511
  Transmission Date: 20160815
  Serious: Yes (Hospitalization)
  Sender: FDA-Public Use
  Company Number: DE-SCIEGEN PHARMACEUTICALS INC-2016SCILIT00118

PATIENT
  Age: 78 Year
  Sex: Male

DRUGS (2)
  1. CLOPIDOGREL [Suspect]
     Active Substance: CLOPIDOGREL BISULFATE
     Indication: ATRIAL FIBRILLATION
     Dosage: 75 MG, QD
     Route: 065
  2. APIXABAN [Suspect]
     Active Substance: APIXABAN
     Indication: ATRIAL FIBRILLATION
     Dosage: 2, 5 MG BID
     Route: 065

REACTIONS (6)
  - Off label use [None]
  - Spinal subarachnoid haemorrhage [Unknown]
  - Prostatic specific antigen increased [Unknown]
  - Leukocytosis [Unknown]
  - Back pain [Unknown]
  - Superficial siderosis of central nervous system [Unknown]
